FAERS Safety Report 11677112 (Version 1)
Quarter: 2015Q4

REPORT INFORMATION
  Report Type: Report from Study
  Country: US (occurrence: US)
  Receive Date: 20151028
  Receipt Date: 20151028
  Transmission Date: 20160304
  Serious: Yes (Hospitalization, Other)
  Sender: FDA-Public Use
  Company Number: US-AMGEN-USASL2015111862

PATIENT
  Age: 70 Year
  Sex: Male

DRUGS (14)
  1. PROCRIT [Suspect]
     Active Substance: ERYTHROPOIETIN
     Indication: PRODUCT USED FOR UNKNOWN INDICATION
     Dosage: 40000 UNITS/ML, UNK
     Route: 065
  2. LASIX [Concomitant]
     Active Substance: FUROSEMIDE
     Indication: OEDEMA PERIPHERAL
     Dosage: 40 MG, DAILY
  3. IRON [Suspect]
     Active Substance: IRON
     Indication: IRON DEFICIENCY ANAEMIA
     Dosage: UNK
     Route: 042
  4. PRAVASTATIN [Concomitant]
     Active Substance: PRAVASTATIN\PRAVASTATIN SODIUM
     Dosage: 40 MG, UNK
  5. IRON [Suspect]
     Active Substance: IRON
     Dosage: UNK
     Route: 048
  6. LOPRESSOR [Concomitant]
     Active Substance: METOPROLOL TARTRATE
     Dosage: 50 MG, UNK
  7. METFORMIN [Concomitant]
     Active Substance: METFORMIN HYDROCHLORIDE
     Dosage: 500 MG, BID
     Route: 048
  8. 5 FU [Concomitant]
     Active Substance: FLUOROURACIL
     Dosage: UNK
  9. POTASSIUM CHLORIDE. [Concomitant]
     Active Substance: POTASSIUM CHLORIDE
     Dosage: 20 MEQ, UNK
  10. DECADRON [Suspect]
     Active Substance: DEXAMETHASONE
     Indication: PRODUCT USED FOR UNKNOWN INDICATION
     Dosage: UNK
     Route: 065
  11. LEUCOVORIN                         /00566701/ [Concomitant]
     Active Substance: LEUCOVORIN
     Dosage: UNK
  12. OXALIPLATIN. [Concomitant]
     Active Substance: OXALIPLATIN
     Dosage: UNK
  13. PLAVIX [Concomitant]
     Active Substance: CLOPIDOGREL BISULFATE
     Dosage: 75 MG, UNK
  14. SPIRONOLACTONE. [Concomitant]
     Active Substance: SPIRONOLACTONE
     Dosage: 25 MG, UNK

REACTIONS (50)
  - Aspiration pleural cavity [Unknown]
  - Cardiomyopathy [Unknown]
  - Oedema peripheral [Not Recovered/Not Resolved]
  - Investigation abnormal [Unknown]
  - Adenoma benign [Not Recovered/Not Resolved]
  - Cough [Not Recovered/Not Resolved]
  - Gastric ulcer haemorrhage [Unknown]
  - Carotid artery occlusion [Unknown]
  - Cardiomegaly [Unknown]
  - Respiratory disorder [Unknown]
  - Burning sensation [Unknown]
  - Gastric disorder [Unknown]
  - Cardiac disorder [Unknown]
  - Dizziness [Unknown]
  - Vascular insufficiency [Unknown]
  - Peripheral vascular disorder [Unknown]
  - Chronic fatigue syndrome [Unknown]
  - Intestinal polyp [Not Recovered/Not Resolved]
  - Peripheral swelling [Unknown]
  - Abdominal hernia [Unknown]
  - Arteriosclerosis coronary artery [Unknown]
  - Nephrogenic anaemia [Unknown]
  - Blood glucose increased [Unknown]
  - Transfusion [Unknown]
  - Oesophageal carcinoma [Unknown]
  - Peripheral ischaemia [Unknown]
  - Diabetic neuropathy [Unknown]
  - Chest pain [Not Recovered/Not Resolved]
  - Musculoskeletal stiffness [Unknown]
  - Drug intolerance [Unknown]
  - Cor pulmonale chronic [Unknown]
  - Fatigue [Unknown]
  - Faeces discoloured [Not Recovered/Not Resolved]
  - Dyspepsia [Unknown]
  - Activities of daily living impaired [Unknown]
  - Malaise [Unknown]
  - Weight decreased [Not Recovered/Not Resolved]
  - Chronic kidney disease [Unknown]
  - Haemoglobin abnormal [Unknown]
  - Anaemia [Unknown]
  - Gastric cancer [Unknown]
  - Rectal haemorrhage [Unknown]
  - Iron deficiency anaemia [Unknown]
  - Mass [Not Recovered/Not Resolved]
  - Breath sounds abnormal [Unknown]
  - Diarrhoea [Unknown]
  - Coronary artery bypass [Unknown]
  - Adenocarcinoma [Not Recovered/Not Resolved]
  - Lung disorder [Unknown]
  - Decreased appetite [Not Recovered/Not Resolved]

NARRATIVE: CASE EVENT DATE: 2010
